FAERS Safety Report 5368024-8 (Version None)
Quarter: 2007Q2

REPORT INFORMATION
  Report Type: 
  Country: None (occurrence: None)
  Receive Date: 20070622
  Receipt Date: 20070612
  Transmission Date: 20071010
  Serious: Yes (Hospitalization, Other)
  Sender: FDA-Public Use
  Company Number: US-PFIZER INC-2007048636

PATIENT
  Sex: Female
  Weight: 53.5 kg

DRUGS (4)
  1. LYRICA [Suspect]
     Dates: start: 20060101, end: 20070101
  2. REBIF [Suspect]
     Indication: MULTIPLE SCLEROSIS
     Dosage: DAILY DOSE:44MCG
     Route: 058
  3. ABILIFY [Concomitant]
  4. DILANTIN [Concomitant]
     Indication: CONVULSION

REACTIONS (3)
  - ANEURYSM [None]
  - CONVULSION [None]
  - LOSS OF CONSCIOUSNESS [None]
